FAERS Safety Report 5061112-5 (Version None)
Quarter: 2006Q3

REPORT INFORMATION
  Report Type: 
  Country: None (occurrence: None)
  Receive Date: 20060725
  Receipt Date: 20060605
  Transmission Date: 20061208
  Serious: Yes (Hospitalization)
  Sender: FDA-Public Use
  Company Number: US-SANOFI-SYNTHELABO-F01200601387

PATIENT
  Sex: Male
  Weight: 75.3 kg

DRUGS (13)
  1. AVASTIN [Suspect]
     Route: 042
     Dates: start: 20060516, end: 20060516
  2. LEUCOVORIN CALCIUM [Suspect]
     Route: 042
     Dates: start: 20060516, end: 20060516
  3. FLUOROURACIL [Suspect]
     Route: 042
     Dates: start: 20060516, end: 20060516
  4. AMBIEN [Concomitant]
  5. PLAVIX [Concomitant]
     Dates: start: 20060525
  6. ASPIRIN [Concomitant]
     Dates: start: 20060525
  7. MULTI-VITAMIN [Concomitant]
  8. TOPROL-XL [Concomitant]
  9. ALBUTEROL [Concomitant]
  10. VYTORIN [Concomitant]
  11. LUNESTA [Concomitant]
  12. CA/MG OR PLACEBO [Suspect]
     Route: 042
     Dates: start: 20060418, end: 20060418
  13. OXALIPLATIN [Suspect]
     Indication: COLORECTAL CANCER METASTATIC
     Route: 042
     Dates: start: 20060418, end: 20060418

REACTIONS (1)
  - CEREBROVASCULAR ACCIDENT [None]
